FAERS Safety Report 5205499-9 (Version None)
Quarter: 2006Q4

REPORT INFORMATION
  Report Type: 
  Country: None (occurrence: None)
  Receive Date: 20061027
  Receipt Date: 20060515
  Transmission Date: 20070319
  Serious: Yes (Other)
  Sender: FDA-Public Use
  Company Number: HQWYE394218MAY06

PATIENT
  Age: 51 Year
  Sex: Female
  Weight: 81.72 kg

DRUGS (1)
  1. PREMARIN [Suspect]
     Indication: HYSTERECTOMY
     Dosage: 0.625 MG 1X PER 1 DAY, ORAL
     Route: 048
     Dates: start: 20040101, end: 20040601

REACTIONS (1)
  - STOMACH DISCOMFORT [None]
